FAERS Safety Report 11932631 (Version 1)
Quarter: 2016Q1

REPORT INFORMATION
  Report Type: Spontaneous
  Country: CA (occurrence: CA)
  Receive Date: 20160120
  Receipt Date: 20160120
  Transmission Date: 20160526
  Serious: Yes (Hospitalization)
  Sender: FDA-Public Use
  Company Number: CA-IGI LABORATORIES, INC.-1046676

PATIENT
  Age: 64 Year
  Sex: Female
  Weight: 69 kg

DRUGS (31)
  1. CYMBALTA [Suspect]
     Active Substance: DULOXETINE HYDROCHLORIDE
     Route: 048
  2. SENNOSIDES. [Suspect]
     Active Substance: SENNOSIDES
  3. PREDNISONE. [Suspect]
     Active Substance: PREDNISONE
  4. CALCIUM CARBONATE. [Suspect]
     Active Substance: CALCIUM CARBONATE
  5. VITAMIN B12 [Suspect]
     Active Substance: CYANOCOBALAMIN
  6. ALENDRONATE SODIUM. [Suspect]
     Active Substance: ALENDRONATE SODIUM
  7. WARFARIN SODIUM. [Suspect]
     Active Substance: WARFARIN SODIUM
  8. HYDROMORPHONE HCL [Suspect]
     Active Substance: HYDROMORPHONE HYDROCHLORIDE
  9. LYRICA [Suspect]
     Active Substance: PREGABALIN
  10. MELATONIN [Suspect]
     Active Substance: MELATONIN
  11. OMEGA-3 FISH OIL [Suspect]
     Active Substance: FISH OIL\OMEGA-3 FATTY ACIDS
  12. VITAMIN C [Suspect]
     Active Substance: ASCORBIC ACID
  13. ZOPICLONE [Suspect]
     Active Substance: ZOPICLONE
  14. SENOKOT [Suspect]
     Active Substance: SENNOSIDES
  15. ANTITHYMOCYTE IMMUNOGLOBULIN [Suspect]
     Active Substance: THYMOCYTE IMMUNE GLOBULIN NOS
  16. ZANTAC [Suspect]
     Active Substance: RANITIDINE HYDROCHLORIDE
     Indication: PRODUCT USED FOR UNKNOWN INDICATION
  17. CELLCEPT [Suspect]
     Active Substance: MYCOPHENOLATE MOFETIL\MYCOPHENOLATE MOFETIL HYDROCHLORIDE
  18. FUROSEMIDE. [Suspect]
     Active Substance: FUROSEMIDE
  19. ACIDOPHILUS [Suspect]
     Active Substance: LACTOBACILLUS ACIDOPHILUS
  20. NOVO HYDRAZIDE [Suspect]
     Active Substance: HYDROCHLOROTHIAZIDE
  21. TIZANIDINE HYDROCHLORIDE. [Suspect]
     Active Substance: TIZANIDINE HYDROCHLORIDE
  22. VITAMIN B COMPLEX [Suspect]
     Active Substance: CYANOCOBALAMIN\DEXPANTHENOL\NIACINAMIDE\PYRIDOXINE HYDROCHLORIDE\RIBOFLAVIN 5^-PHOSPHATE SODIUM\THIAMINE HYDROCHLORIDE\VITAMIN B COMPLEX
  23. NORTRIPTYLINE HYDROCHLORIDE. [Suspect]
     Active Substance: NORTRIPTYLINE HYDROCHLORIDE
  24. IMODIUM [Suspect]
     Active Substance: LOPERAMIDE HYDROCHLORIDE
  25. APO-K [Suspect]
     Active Substance: POTASSIUM CHLORIDE
  26. NASONEX [Suspect]
     Active Substance: MOMETASONE FUROATE
  27. LORATADINE. [Suspect]
     Active Substance: LORATADINE
  28. SULFATRIM [Suspect]
     Active Substance: SULFAMETHOXAZOLE\TRIMETHOPRIM
  29. ATIVAN [Suspect]
     Active Substance: LORAZEPAM
  30. BACLOFEN. [Suspect]
     Active Substance: BACLOFEN
  31. DOCUSATE SODIUM. [Suspect]
     Active Substance: DOCUSATE SODIUM

REACTIONS (4)
  - Coma [Recovered/Resolved]
  - Pneumonia aspiration [Recovered/Resolved]
  - Somnolence [Recovered/Resolved]
  - Gastrooesophageal reflux disease [Recovered/Resolved]
